FAERS Safety Report 21141239 (Version 3)
Quarter: 2022Q4

REPORT INFORMATION
  Report Type: Report from Study
  Country: US (occurrence: US)
  Receive Date: 20220728
  Receipt Date: 20221122
  Transmission Date: 20230113
  Serious: Yes (Other)
  Sender: FDA-Public Use
  Company Number: US-ABBVIE-22K-163-4484035-00

PATIENT
  Sex: Female

DRUGS (1)
  1. VENCLEXTA [Suspect]
     Active Substance: VENETOCLAX
     Indication: Acute myeloid leukaemia
     Route: 048
     Dates: start: 202207

REACTIONS (5)
  - Cerebrovascular accident [Unknown]
  - Acute myeloid leukaemia [Unknown]
  - Product use complaint [Unknown]
  - Pain [Recovered/Resolved]
  - Wrong technique in product usage process [Unknown]
